FAERS Safety Report 16175135 (Version 1)
Quarter: 2019Q2

REPORT INFORMATION
  Report Type: Spontaneous
  Country: US (occurrence: US)
  Receive Date: 20190409
  Receipt Date: 20190409
  Transmission Date: 20190711
  Serious: No
  Sender: FDA-Public Use
  Company Number: US-PERRIGO-18US014321

PATIENT
  Age: 87 Year
  Sex: Female
  Weight: 62.59 kg

DRUGS (7)
  1. AMLODIPINE [Concomitant]
     Active Substance: AMLODIPINE BESYLATE
     Indication: CARDIAC DISORDER
     Dosage: UNK
     Route: 065
  2. CLOBETASOL PROPIONATE RX 0.05% 9F0 [Suspect]
     Active Substance: CLOBETASOL PROPIONATE
     Indication: ECZEMA
     Dosage: UNKNOWN AMOUNT, Q EVENING
     Route: 061
     Dates: start: 20181016
  3. LOSARTAN. [Concomitant]
     Active Substance: LOSARTAN
     Indication: HYPERTENSION
     Dosage: UNK
     Route: 065
     Dates: start: 2018
  4. EYE DROPS                          /00256502/ [Concomitant]
     Active Substance: OXYMETAZOLINE
     Indication: DRY EYE
     Dosage: UNK
     Route: 065
  5. CICLOPIROX. [Suspect]
     Active Substance: CICLOPIROX
     Indication: ECZEMA
     Dosage: UNKNOWN AMOUNT, QOD
     Route: 061
     Dates: start: 20181016
  6. CICLOPIROX. [Suspect]
     Active Substance: CICLOPIROX
     Dosage: UNKNOWN AMOUNT, Q 2 TO 3 DAYS
     Route: 061
     Dates: start: 201810
  7. TRIAMCINOLONE ACETONIDE (GLUCOCORTICOID) [Concomitant]
     Indication: ECZEMA
     Dosage: UNK
     Route: 065

REACTIONS (6)
  - Taste disorder [Not Recovered/Not Resolved]
  - Application site pruritus [Not Recovered/Not Resolved]
  - Application site pain [Not Recovered/Not Resolved]
  - Application site dryness [Not Recovered/Not Resolved]
  - Incorrect product administration duration [Not Recovered/Not Resolved]
  - Off label use [Not Recovered/Not Resolved]

NARRATIVE: CASE EVENT DATE: 201810
